APPROVED DRUG PRODUCT: OMNIPAQUE 240
Active Ingredient: IOHEXOL
Strength: 51.8%
Dosage Form/Route: SOLUTION;INJECTION, ORAL, RECTAL
Application: N020608 | Product #001
Applicant: GE HEALTHCARE
Approved: Oct 24, 1995 | RLD: No | RS: No | Type: DISCN